FAERS Safety Report 12147858 (Version 1)
Quarter: 2016Q1

REPORT INFORMATION
  Report Type: Spontaneous
  Country: JP (occurrence: JP)
  Receive Date: 20160304
  Receipt Date: 20160304
  Transmission Date: 20160526
  Serious: Yes (Other)
  Sender: FDA-Public Use
  Company Number: JP-009507513-1512JPN004427

PATIENT
  Age: 85 Year
  Sex: Male

DRUGS (7)
  1. PNEUMOVAX NP [Suspect]
     Active Substance: PNEUMOCOCCAL VACCINE, POLYVALENT 23
     Indication: PROPHYLAXIS
     Route: 058
     Dates: start: 20151114, end: 20151114
  2. BAYASPIRIN [Suspect]
     Active Substance: ASPIRIN
     Dosage: DAILY DOSE UNKNOWN
     Route: 048
  3. CRESTOR [Suspect]
     Active Substance: ROSUVASTATIN CALCIUM
     Dosage: DAILY DOSE UNKNOWN
     Route: 048
  4. PALNAC [Suspect]
     Active Substance: TAMSULOSIN
     Dosage: DAILY DOSE UNKNOWN
     Route: 048
  5. ALLOPURINOL. [Suspect]
     Active Substance: ALLOPURINOL
     Dosage: DAILY DOSE UNKNOWN
     Route: 048
  6. MAINTATE [Suspect]
     Active Substance: BISOPROLOL FUMARATE
     Indication: BLOOD PRESSURE INCREASED
     Dosage: DAILY DOSAGE UNKNOWN, ONLY ADMINISTERED WEHN BLOOD PRESSURE READING HIGH
     Route: 048
  7. CANDESARTAN CILEXETIL. [Suspect]
     Active Substance: CANDESARTAN CILEXETIL
     Indication: BLOOD PRESSURE INCREASED
     Dosage: DAILY DOSAGE UNKNOWN, ONLY ADMINSITERED WHEN BLOOD PRESSURE READING HIGH
     Route: 048

REACTIONS (2)
  - Rhinorrhoea [Unknown]
  - Lymphoma [Not Recovered/Not Resolved]

NARRATIVE: CASE EVENT DATE: 201511
